FAERS Safety Report 19601501 (Version 1)
Quarter: 2021Q3

REPORT INFORMATION
  Report Type: Spontaneous
  Country: US (occurrence: US)
  Receive Date: 20210722
  Receipt Date: 20210722
  Transmission Date: 20211014
  Serious: No
  Sender: FDA-Public Use
  Company Number: US-ASTRAZENECA-2021A582331

PATIENT
  Sex: Male

DRUGS (2)
  1. BYDUREON BCISE [Suspect]
     Active Substance: EXENATIDE
     Dosage: 2.0MG UNKNOWN
     Route: 058
  2. BYDUREON [Concomitant]
     Active Substance: EXENATIDE
     Dates: start: 2016

REACTIONS (4)
  - Injection site mass [Unknown]
  - Hypertension [Unknown]
  - Blood cholesterol increased [Unknown]
  - Illness [Unknown]
